FAERS Safety Report 21220406 (Version 1)
Quarter: 2022Q3

REPORT INFORMATION
  Report Type: Spontaneous
  Country: DE (occurrence: DE)
  Receive Date: 20220817
  Receipt Date: 20220817
  Transmission Date: 20221027
  Serious: Yes (Other)
  Sender: FDA-Public Use
  Company Number: DE-BAYER-2022A096503

PATIENT
  Age: 32 Year
  Sex: Male

DRUGS (6)
  1. SILDENAFIL [Interacting]
     Active Substance: SILDENAFIL
     Indication: Loss of libido
     Dosage: UNK
     Route: 065
  2. TADALAFIL [Interacting]
     Active Substance: TADALAFIL
     Indication: Loss of libido
     Dosage: UNK
     Route: 065
  3. HYPERICUM PERFORATUM WHOLE [Interacting]
     Active Substance: HYPERICUM PERFORATUM WHOLE
     Indication: Apathy
     Dosage: 900 MG
     Route: 048
     Dates: start: 20220526, end: 20220709
  4. HYPERICUM PERFORATUM WHOLE [Interacting]
     Active Substance: HYPERICUM PERFORATUM WHOLE
     Indication: Sleep disorder
     Dosage: 450 MILLIGRAM, ONCE A DAY
     Route: 048
     Dates: start: 20220709
  5. HYPERICUM PERFORATUM WHOLE [Interacting]
     Active Substance: HYPERICUM PERFORATUM WHOLE
     Indication: Depression
  6. MIRTAZAPINE [Suspect]
     Active Substance: MIRTAZAPINE
     Indication: Product used for unknown indication
     Dosage: 3.75 MG
     Route: 065

REACTIONS (10)
  - Erectile dysfunction [Recovering/Resolving]
  - Orgasm abnormal [Not Recovered/Not Resolved]
  - Libido disorder [Recovering/Resolving]
  - Restlessness [Not Recovered/Not Resolved]
  - Irritability [Not Recovered/Not Resolved]
  - Drug interaction [Recovering/Resolving]
  - Genital hypoaesthesia [Not Recovered/Not Resolved]
  - Incorrect dose administered [Not Recovered/Not Resolved]
  - Erection increased [Recovered/Resolved]
  - Fatigue [Not Recovered/Not Resolved]

NARRATIVE: CASE EVENT DATE: 20220101
